FAERS Safety Report 6872304-4 (Version None)
Quarter: 2010Q3

REPORT INFORMATION
  Report Type: 
  Country: None (occurrence: None)
  Receive Date: 20100723
  Receipt Date: 20100719
  Transmission Date: 20110219
  Serious: Yes (Death, Hospitalization, Other)
  Sender: FDA-Public Use
  Company Number: PHHY2010GB16047

PATIENT
  Sex: Female

DRUGS (1)
  1. CLOZARIL [Suspect]
     Indication: SCHIZOPHRENIA
     Dosage: UNK
     Dates: start: 20020520

REACTIONS (6)
  - CARDIAC ARREST [None]
  - COLITIS ISCHAEMIC [None]
  - CONSTIPATION [None]
  - GASTROINTESTINAL SURGERY [None]
  - INTESTINAL INFARCTION [None]
  - INTESTINAL OBSTRUCTION [None]
